FAERS Safety Report 12996260 (Version 1)
Quarter: 2016Q4

REPORT INFORMATION
  Report Type: Spontaneous
  Country: US (occurrence: US)
  Receive Date: 20161203
  Receipt Date: 20161203
  Transmission Date: 20170207
  Serious: Yes (Hospitalization)
  Sender: FDA-Public Use
  Company Number: US-AXELLIA-001008

PATIENT
  Age: 65 Year
  Sex: Male

DRUGS (5)
  1. IMMUNOGLOBULIN ANTIHEPATITIS B [Concomitant]
  2. VANCOMYCIN [Suspect]
     Active Substance: VANCOMYCIN
     Indication: PANCYTOPENIA
  3. CEFEPIME/CEFEPIME HYDROCHLORIDE [Concomitant]
     Indication: PANCYTOPENIA
  4. DECITABINE. [Concomitant]
     Active Substance: DECITABINE
  5. EMTRICITABINE/TENOFOVIR [Concomitant]
     Indication: HEPATITIS B

REACTIONS (3)
  - Enterococcal bacteraemia [Unknown]
  - Renal failure [Unknown]
  - Sepsis [Unknown]
